FAERS Safety Report 9708674 (Version 1)
Quarter: 2013Q4

REPORT INFORMATION
  Report Type: Spontaneous
  Country: GB (occurrence: None)
  Receive Date: 20131121
  Receipt Date: 20131121
  Transmission Date: 20140711
  Serious: Yes (Other)
  Sender: FDA-Public Use
  Company Number: INT_00337_2013

PATIENT
  Age: 28 Year
  Sex: Female
  Weight: 4.5 kg

DRUGS (8)
  1. MEROPENEM [Suspect]
     Indication: SEPSIS
     Route: 042
     Dates: start: 20131001, end: 20131001
  2. MEROPENEM [Suspect]
     Indication: OFF LABEL USE
     Route: 042
     Dates: start: 20131001, end: 20131001
  3. AMILORIDE [Concomitant]
  4. ANAESTHETICS [Concomitant]
  5. CAPTOPRIL [Concomitant]
  6. FUROSEMIDE [Concomitant]
  7. MILRINONE [Concomitant]
  8. PHENOBARBITAL [Concomitant]

REACTIONS (1)
  - Alanine aminotransferase increased [None]
